FAERS Safety Report 9203408 (Version 1)
Quarter: 2013Q1

REPORT INFORMATION
  Report Type: Spontaneous
  Country: CA (occurrence: None)
  Receive Date: 20130328
  Receipt Date: 20130328
  Transmission Date: 20140127
  Serious: Yes (Other)
  Sender: FDA-Public Use
  Company Number: CA-1197349

PATIENT
  Age: 55 Year
  Sex: Male
  Weight: 72.12 kg

DRUGS (1)
  1. VIGAMOX [Suspect]
     Indication: ULCERATIVE KERATITIS
     Dosage: 1 GTT Q4H OS OPHTHALMIC) (1 GTT TID OS OPHTHALMIC)
     Route: 047
     Dates: start: 20130124, end: 20130127

REACTIONS (1)
  - Ulcerative keratitis [None]
